FAERS Safety Report 5134073-8 (Version None)
Quarter: 2006Q4

REPORT INFORMATION
  Report Type: 
  Country: None (occurrence: None)
  Receive Date: 20061019
  Receipt Date: 20060909
  Transmission Date: 20070319
  Serious: Yes (Hospitalization)
  Sender: FDA-Public Use
  Company Number: 2006124364

PATIENT
  Age: 67 Year
  Sex: Female

DRUGS (5)
  1. IDARUBICIN HCL [Suspect]
     Indication: ACUTE MYELOID LEUKAEMIA
     Dosage: 10 MG/M2, INTRAVENOUS
     Route: 042
     Dates: start: 20041216
  2. CYTARABINE [Suspect]
     Indication: ACUTE MYELOID LEUKAEMIA
     Dosage: 50 MG/M2 SUBCUTANEOUS
     Route: 058
     Dates: start: 20041216
  3. NORETHANDROLONE (NORETHANDROLONE) [Suspect]
     Indication: ACUTE MYELOID LEUKAEMIA
     Dosage: 1 DF, ORAL
     Route: 048
     Dates: start: 20041201
  4. MERCAPTOPURINE [Suspect]
     Indication: ACUTE MYELOID LEUKAEMIA
     Dosage: 2 DF, ORAL
     Route: 048
     Dates: start: 20041201
  5. METHOTREXATE [Suspect]
     Indication: ACUTE MYELOID LEUKAEMIA
     Dosage: 2 DF, ORAL
     Route: 048
     Dates: start: 20041201

REACTIONS (5)
  - PAIN [None]
  - PHARMACEUTICAL PRODUCT COMPLAINT [None]
  - PYODERMA GANGRENOSUM [None]
  - SKIN GRAFT FAILURE [None]
  - SKIN ULCER [None]
